FAERS Safety Report 24875567 (Version 2)
Quarter: 2025Q1

REPORT INFORMATION
  Report Type: Spontaneous
  Country: US (occurrence: US)
  Receive Date: 20250122
  Receipt Date: 20250130
  Transmission Date: 20250409
  Serious: Yes (Other)
  Sender: PFIZER
  Company Number: US-PFIZER INC-202500015346

PATIENT
  Age: 47 Year
  Sex: Female

DRUGS (8)
  1. XELJANZ XR [Suspect]
     Active Substance: TOFACITINIB CITRATE
     Indication: Psoriatic arthropathy
     Dosage: 11 MG, DAILY
     Route: 048
  2. IRON [Concomitant]
     Active Substance: IRON
  3. METFORMIN [Concomitant]
     Active Substance: METFORMIN HYDROCHLORIDE
  4. PROBIOTICS NOS [Concomitant]
     Active Substance: PROBIOTICS NOS
  5. TYLENOL ARTHRITIS PAIN [Concomitant]
     Active Substance: ACETAMINOPHEN
     Indication: Arthritis
  6. IBUPROFEN [Concomitant]
     Active Substance: IBUPROFEN
  7. PRILOSEC OTC [Concomitant]
     Active Substance: OMEPRAZOLE MAGNESIUM
  8. GABAPENTIN [Concomitant]
     Active Substance: GABAPENTIN

REACTIONS (2)
  - Blindness [Unknown]
  - Ocular neoplasm [Not Recovered/Not Resolved]

NARRATIVE: CASE EVENT DATE: 20241201
